FAERS Safety Report 8780284 (Version 1)
Quarter: 2012Q4

REPORT INFORMATION
  Report Type: Spontaneous
  Country: JP (occurrence: None)
  Receive Date: 20120829
  Receipt Date: 20120829
  Transmission Date: 20130627
  Serious: Yes (Hospitalization)
  Sender: FDA-Public Use
  Company Number: FK201202478

PATIENT
  Age: 64 Year
  Sex: Female

DRUGS (4)
  1. FLUOROURACIL [Suspect]
     Indication: COLORECTAL CANCER METASTATIC
     Dosage: (not otherwise specified)
     Route: 042
  2. LEUCOVORIN [Suspect]
     Indication: COLORECTAL CANCER METASTATIC
     Dosage: (not otherwise specified)
     Route: 042
  3. OXALIPLATIN [Suspect]
     Indication: COLORECTAL CANCER METASTATIC
     Dosage: (not otherwise specified)
     Route: 042
  4. BEVACIZUMAB [Suspect]
     Indication: COLORECTAL CANCER METASTATIC
     Dosage: (not otherwise specified)
     Route: 042

REACTIONS (7)
  - Ileus [None]
  - Inflammation [None]
  - Tumour necrosis [None]
  - Intestinal stenosis [None]
  - Large intestinal ulcer [None]
  - Fibrosis [None]
  - Large intestinal haemorrhage [None]
